FAERS Safety Report 7378247-4 (Version None)
Quarter: 2011Q1

REPORT INFORMATION
  Report Type: 
  Country: None (occurrence: None)
  Receive Date: 20110328
  Receipt Date: 20110321
  Transmission Date: 20110831
  Serious: Yes (Hospitalization)
  Sender: FDA-Public Use
  Company Number: B0707084A

PATIENT
  Sex: Male

DRUGS (7)
  1. ELISOR [Concomitant]
     Route: 065
  2. SERESTA [Suspect]
     Indication: INSOMNIA
     Route: 048
     Dates: start: 20110115, end: 20110125
  3. AUGMENTIN [Suspect]
     Indication: LUNG DISORDER
     Route: 048
     Dates: start: 20110115, end: 20110125
  4. ACETAMINOPHEN [Suspect]
     Indication: PYREXIA
     Route: 048
     Dates: start: 20110115, end: 20110125
  5. ZYLORIC [Concomitant]
     Route: 065
  6. PREVISCAN [Concomitant]
     Route: 065
  7. MULTAQ [Suspect]
     Indication: SUPRAVENTRICULAR TACHYCARDIA
     Route: 048
     Dates: start: 20101115, end: 20110125

REACTIONS (5)
  - CHOLESTASIS [None]
  - LUNG DISORDER [None]
  - JAUNDICE [None]
  - HEPATITIS ACUTE [None]
  - CYTOLYTIC HEPATITIS [None]
